FAERS Safety Report 4663771-5 (Version None)
Quarter: 2005Q2

REPORT INFORMATION
  Report Type: 
  Country: None (occurrence: None)
  Receive Date: 20050516
  Receipt Date: 20050429
  Transmission Date: 20051028
  Serious: Yes (Hospitalization)
  Sender: FDA-Public Use
  Company Number: 181845

PATIENT
  Age: 54 Year
  Sex: Female
  Weight: 47.1741 kg

DRUGS (10)
  1. AVONEX [Suspect]
     Indication: MULTIPLE SCLEROSIS
     Dosage: 30 UG; QW; IM
     Route: 030
     Dates: start: 20011101, end: 20020101
  2. AVONEX [Suspect]
     Indication: MULTIPLE SCLEROSIS
     Dosage: 30 UG; QW; IM
     Route: 030
     Dates: start: 20041122
  3. LIBRAX [Concomitant]
  4. DARVOCET [Concomitant]
  5. VICODIN [Concomitant]
  6. DIAZEPAM [Concomitant]
  7. SOMA [Concomitant]
  8. PREMARIN [Concomitant]
  9. MENEST [Concomitant]
  10. FLUOXETINE [Concomitant]

REACTIONS (17)
  - ASTHENIA [None]
  - BLADDER DISORDER [None]
  - CENTRAL NERVOUS SYSTEM LESION [None]
  - CONDITION AGGRAVATED [None]
  - COORDINATION ABNORMAL [None]
  - FACIAL BONES FRACTURE [None]
  - FATIGUE [None]
  - GASTROINTESTINAL DISORDER [None]
  - INTERVERTEBRAL DISC DISORDER [None]
  - JAW FRACTURE [None]
  - MALAISE [None]
  - MULTIPLE SCLEROSIS [None]
  - NAUSEA [None]
  - OPTIC NEURITIS [None]
  - ROAD TRAFFIC ACCIDENT [None]
  - SPEECH DISORDER [None]
  - WHIPLASH INJURY [None]
